FAERS Safety Report 7968525-X (Version None)
Quarter: 2011Q4

REPORT INFORMATION
  Report Type: 
  Country: None (occurrence: None)
  Receive Date: 20111209
  Receipt Date: 20111130
  Transmission Date: 20120403
  Serious: Yes (Other)
  Sender: FDA-Public Use
  Company Number: US-BAYER-2011-115883

PATIENT
  Age: 28 Year
  Sex: Female

DRUGS (2)
  1. MIRENA [Suspect]
     Indication: CONTRACEPTION
     Dosage: UNK
     Dates: start: 20110906, end: 20111128
  2. MIRENA [Suspect]
     Indication: MENORRHAGIA

REACTIONS (2)
  - MENORRHAGIA [None]
  - DEVICE DISLOCATION [None]
